FAERS Safety Report 14924222 (Version 1)
Quarter: 2018Q2

REPORT INFORMATION
  Report Type: Spontaneous
  Country: DE (occurrence: DE)
  Receive Date: 20180522
  Receipt Date: 20180522
  Transmission Date: 20180711
  Serious: Yes (Hospitalization)
  Sender: FDA-Public Use
  Company Number: DE-PFIZER INC-2018204720

PATIENT
  Age: 58 Year
  Sex: Male

DRUGS (5)
  1. METHOTREXATE SODIUM. [Suspect]
     Active Substance: METHOTREXATE SODIUM
     Dosage: 20 MG, WEEKLY
  2. FOLIC ACID. [Concomitant]
     Active Substance: FOLIC ACID
     Dosage: UNK, WEEKLY
  3. TIMONIL [Suspect]
     Active Substance: CARBAMAZEPINE
     Dosage: 300 MG, 2X/DAY (1-0-1-0)
  4. LEVOTHYROXIN [Concomitant]
     Active Substance: LEVOTHYROXINE
     Dosage: 100 ?G, 1.5-0-0-0
  5. DECORTIN [Concomitant]
     Active Substance: PREDNISONE
     Dosage: 7.5 MG, 1-0-0-0

REACTIONS (3)
  - Nausea [Unknown]
  - Dizziness [Unknown]
  - Syncope [Unknown]
